FAERS Safety Report 11275666 (Version 2)
Quarter: 2016Q4

REPORT INFORMATION
  Report Type: Spontaneous
  Country: US (occurrence: US)
  Receive Date: 20150716
  Receipt Date: 20161103
  Transmission Date: 20170206
  Serious: No
  Sender: FDA-Public Use
  Company Number: PHEH2015US013202

PATIENT
  Sex: Male

DRUGS (6)
  1. TRILEPTAL [Suspect]
     Active Substance: OXCARBAZEPINE
     Indication: BIPOLAR DISORDER
     Dosage: 300 MG, UNK
     Route: 065
  2. OXCARBAZEPINE. [Suspect]
     Active Substance: OXCARBAZEPINE
     Indication: PRODUCT USED FOR UNKNOWN INDICATION
     Dosage: UNK
     Route: 065
  3. ALPRAZOLAM. [Concomitant]
     Active Substance: ALPRAZOLAM
     Indication: PRODUCT USED FOR UNKNOWN INDICATION
     Route: 065
  4. LIPITOR [Concomitant]
     Active Substance: ATORVASTATIN CALCIUM
     Indication: PRODUCT USED FOR UNKNOWN INDICATION
     Route: 065
  5. TRILEPTAL [Suspect]
     Active Substance: OXCARBAZEPINE
     Dosage: 2.5 PILLS IN EARLY PART OF THE DAY BETWEEN 9 AND 1. THEN ANOTHER 4 PILLS ABOUT 10 AT NIGHT (300 MG)
     Route: 065
  6. IBUPROFEN. [Concomitant]
     Active Substance: IBUPROFEN
     Indication: PRODUCT USED FOR UNKNOWN INDICATION
     Dosage: 300 MG, QD
     Route: 065

REACTIONS (26)
  - Tremor [Unknown]
  - Visual impairment [Unknown]
  - Muscle spasms [Unknown]
  - Motor dysfunction [Unknown]
  - Mania [Unknown]
  - Pain in extremity [Unknown]
  - Aphasia [Unknown]
  - Polyuria [Unknown]
  - Hyperhidrosis [Unknown]
  - Discomfort [Unknown]
  - Mood altered [Unknown]
  - Agitation [Unknown]
  - Drug ineffective [Unknown]
  - Chest pain [Unknown]
  - Skin disorder [Unknown]
  - Dysgeusia [Unknown]
  - Feeling abnormal [Unknown]
  - Muscular weakness [Unknown]
  - Dysarthria [Unknown]
  - Dizziness [Unknown]
  - Diplopia [Unknown]
  - Myalgia [Unknown]
  - Thirst [Unknown]
  - Somnolence [Unknown]
  - Fatigue [Unknown]
  - Erythema [Unknown]
